FAERS Safety Report 23635217 (Version 1)
Quarter: 2024Q1

REPORT INFORMATION
  Report Type: Spontaneous
  Country: BR (occurrence: BR)
  Receive Date: 20240315
  Receipt Date: 20240315
  Transmission Date: 20240410
  Serious: Yes (Other)
  Sender: FDA-Public Use
  Company Number: BR-ORGANON-O2403BRA001148

PATIENT
  Age: 79 Year
  Sex: Male
  Weight: 66 kg

DRUGS (2)
  1. VYTORIN [Suspect]
     Active Substance: EZETIMIBE\SIMVASTATIN
     Indication: Blood cholesterol
     Dosage: 1 DOSAGE FORM, QOD
     Route: 048
  2. VYTORIN [Suspect]
     Active Substance: EZETIMIBE\SIMVASTATIN
     Indication: Blood cholesterol
     Dosage: UNK
     Route: 048
     Dates: start: 2024

REACTIONS (2)
  - Prostate cancer [Recovered/Resolved]
  - Thyroid disorder [Unknown]
